FAERS Safety Report 10225761 (Version 2)
Quarter: 2017Q2

REPORT INFORMATION
  Report Type: Spontaneous
  Country: US (occurrence: US)
  Receive Date: 20140609
  Receipt Date: 20170413
  Transmission Date: 20170829
  Serious: No
  Sender: FDA-Public Use
  Company Number: US-ASTELLAS-2013US007091

PATIENT
  Sex: Female

DRUGS (3)
  1. PROGRAF [Suspect]
     Active Substance: TACROLIMUS\TACROLIMUS ANHYDROUS
     Indication: RENAL TRANSPLANT
     Route: 048
     Dates: start: 20080320
  2. PROGRAF [Suspect]
     Active Substance: TACROLIMUS\TACROLIMUS ANHYDROUS
     Indication: NEPHROTIC SYNDROME
     Dosage: 0.5 MG, TWICE DAILY
     Route: 048
  3. PROGRAF [Suspect]
     Active Substance: TACROLIMUS\TACROLIMUS ANHYDROUS
     Route: 065

REACTIONS (2)
  - Off label use [Unknown]
  - Asthenia [Unknown]
